FAERS Safety Report 24297498 (Version 1)
Quarter: 2024Q3

REPORT INFORMATION
  Report Type: Spontaneous
  Country: US (occurrence: US)
  Receive Date: 20240909
  Receipt Date: 20240909
  Transmission Date: 20241017
  Serious: No
  Sender: VIIV
  Company Number: US-VIIV HEALTHCARE LIMITED-US2024108437

PATIENT
  Age: 66 Year
  Sex: Female

DRUGS (1)
  1. TRIUMEQ [Suspect]
     Active Substance: ABACAVIR SULFATE\DOLUTEGRAVIR SODIUM\LAMIVUDINE
     Indication: HIV infection
     Dosage: 1 DF, QD, 600/50/300 MG
     Route: 048
     Dates: start: 20220301

REACTIONS (6)
  - Illness [Recovered/Resolved]
  - Fatigue [Not Recovered/Not Resolved]
  - Viral load increased [Unknown]
  - CD4 lymphocytes decreased [Unknown]
  - Product dose omission issue [Not Recovered/Not Resolved]
  - Treatment noncompliance [Unknown]

NARRATIVE: CASE EVENT DATE: 20231201
